FAERS Safety Report 17492640 (Version 2)
Quarter: 2020Q1

REPORT INFORMATION
  Report Type: Spontaneous
  Country: US (occurrence: US)
  Receive Date: 20200304
  Receipt Date: 20200312
  Transmission Date: 20200409
  Serious: No
  Sender: FDA-Public Use
  Company Number: US-AMGEN-USASP2020035988

PATIENT
  Age: 67 Year
  Sex: Female

DRUGS (4)
  1. CALCIUM [Concomitant]
     Active Substance: CALCIUM
     Route: 065
  2. VIT D [Concomitant]
     Active Substance: VITAMIN D NOS
     Route: 065
  3. PROLIA [Suspect]
     Active Substance: DENOSUMAB
     Indication: OSTEOPOROSIS POSTMENOPAUSAL
     Dosage: UNK
     Route: 065
     Dates: start: 201912
  4. VIMPAT [Concomitant]
     Active Substance: LACOSAMIDE
     Indication: SEIZURE
     Route: 065

REACTIONS (6)
  - Headache [Recovered/Resolved]
  - Peripheral swelling [Unknown]
  - Weight increased [Unknown]
  - Abdominal distension [Unknown]
  - Back pain [Unknown]
  - Fluid retention [Unknown]

NARRATIVE: CASE EVENT DATE: 202001
